FAERS Safety Report 8994862 (Version 1)
Quarter: 2012Q4

REPORT INFORMATION
  Report Type: Spontaneous
  Country: None (occurrence: None)
  Receive Date: 20121221
  Receipt Date: 20121221
  Transmission Date: 20130627
  Serious: Yes (Other)
  Sender: FDA-Public Use
  Company Number: 2012VX005348

PATIENT
  Age: 57 Year
  Sex: Male

DRUGS (1)
  1. TIMOLOL MALEATE (TIMOLOL MALEATE) [Suspect]
     Indication: GLAUCOMA
     Route: 031
     Dates: start: 2008

REACTIONS (2)
  - Retinal detachment [None]
  - Retinal tear [None]
